FAERS Safety Report 9931903 (Version 1)
Quarter: 2014Q1

REPORT INFORMATION
  Report Type: Spontaneous
  Country: US (occurrence: US)
  Receive Date: 20140228
  Receipt Date: 20140228
  Transmission Date: 20141002
  Serious: No
  Sender: FDA-Public Use
  Company Number: US-009507513-1402USA012063

PATIENT
  Age: 15 Year
  Sex: Female
  Weight: 63.49 kg

DRUGS (1)
  1. NEXPLANON [Suspect]
     Indication: CONTRACEPTION
     Dosage: IMPLANT IN LEFT ARM, 3 YEAR IMPLANT
     Route: 059
     Dates: start: 20121025

REACTIONS (3)
  - Unintended pregnancy [Unknown]
  - Abdominal pain upper [Unknown]
  - Menorrhagia [Unknown]
